FAERS Safety Report 5170344-7 (Version None)
Quarter: 2006Q4

REPORT INFORMATION
  Report Type: 
  Country: None (occurrence: None)
  Receive Date: 20061204
  Receipt Date: 20061124
  Transmission Date: 20070319
  Serious: Yes (Hospitalization)
  Sender: FDA-Public Use
  Company Number: 220005M06FRA

PATIENT
  Age: 16 Year
  Sex: Male
  Weight: 51 kg

DRUGS (1)
  1. SAIZEN [Suspect]
     Indication: GROWTH HORMONE DEFICIENCY
     Dosage: 12.6 MG, 1 IN 1 WEEKS, INTRAMUSCULAR
     Route: 030
     Dates: start: 19970912

REACTIONS (1)
  - POLYARTHRITIS [None]
